FAERS Safety Report 6931336-8 (Version None)
Quarter: 2010Q3

REPORT INFORMATION
  Report Type: 
  Country: None (occurrence: None)
  Receive Date: 20100816
  Receipt Date: 20100802
  Transmission Date: 20110219
  Serious: Yes (Hospitalization)
  Sender: FDA-Public Use
  Company Number: 662533

PATIENT
  Age: 90 Year
  Sex: Female

DRUGS (3)
  1. VANCOMYCIN HCL [Suspect]
     Indication: POSTOPERATIVE WOUND INFECTION
     Dosage: 2 G (GRAM(S), INTRAVENOUS
     Route: 042
     Dates: start: 20100430, end: 20100503
  2. TARGOCID [Suspect]
     Indication: PRODUCT USED FOR UNKNOWN INDICATION
     Dosage: 400 MG MILLIGRAM(S), INTRAVENOUS
     Route: 042
     Dates: start: 20100507, end: 20100519
  3. (CLEXANE) [Suspect]
     Indication: PRODUCT USED FOR UNKNOWN INDICATION
     Dosage: 4000 IU INTERNATIONAL UNIT(S), SUBCUTANEOUS
     Route: 058
     Dates: start: 20100430, end: 20100519

REACTIONS (2)
  - DERMATITIS EXFOLIATIVE [None]
  - DRUG HYPERSENSITIVITY [None]
